FAERS Safety Report 19495850 (Version 2)
Quarter: 2021Q3

REPORT INFORMATION
  Report Type: Other
  Country: US (occurrence: US)
  Receive Date: 20210706
  Receipt Date: 20210716
  Transmission Date: 20211014
  Serious: Yes (Hospitalization)
  Sender: FDA-Public Use
  Company Number: US-ROCHE-2861065

PATIENT
  Sex: Female
  Weight: 98.52 kg

DRUGS (3)
  1. OCREVUS [Suspect]
     Active Substance: OCRELIZUMAB
     Indication: MULTIPLE SCLEROSIS
     Route: 042
  2. OCREVUS [Suspect]
     Active Substance: OCRELIZUMAB
     Route: 042
     Dates: start: 20200210
  3. LYRICA [Concomitant]
     Active Substance: PREGABALIN

REACTIONS (5)
  - Hypersomnia [Not Recovered/Not Resolved]
  - Urinary tract infection [Recovered/Resolved]
  - Decubitus ulcer [Recovered/Resolved]
  - Nephrolithiasis [Recovered/Resolved]
  - Fatigue [Not Recovered/Not Resolved]
